FAERS Safety Report 12488520 (Version 1)
Quarter: 2016Q2

REPORT INFORMATION
  Report Type: Spontaneous
  Country: GB (occurrence: GB)
  Receive Date: 20160622
  Receipt Date: 20160622
  Transmission Date: 20160815
  Serious: Yes (Hospitalization)
  Sender: FDA-Public Use
  Company Number: GB-TEVA-668540ACC

PATIENT
  Age: 72 Year
  Sex: Male

DRUGS (11)
  1. LACTULOSE. [Concomitant]
     Active Substance: LACTULOSE
  2. DIGOXIN. [Concomitant]
     Active Substance: DIGOXIN
  3. TRIMETHOPRIM. [Suspect]
     Active Substance: TRIMETHOPRIM
     Indication: GENITOURINARY TRACT INFECTION
     Route: 048
     Dates: end: 20160527
  4. FOSTAIR [Concomitant]
     Active Substance: BECLOMETHASONE\FORMOTEROL
  5. SALBUTAMOL [Concomitant]
     Active Substance: ALBUTEROL
  6. RAMIPRIL. [Concomitant]
     Active Substance: RAMIPRIL
  7. WARFARIN [Suspect]
     Active Substance: WARFARIN
     Indication: ATRIAL FIBRILLATION
     Dosage: 1/0MG
     Route: 048
     Dates: end: 20160527
  8. COCODAMOL [Concomitant]
     Active Substance: ACETAMINOPHEN\CODEINE PHOSPHATE
  9. FUROSEMIDE. [Concomitant]
     Active Substance: FUROSEMIDE
  10. ALLOPURINOL. [Concomitant]
     Active Substance: ALLOPURINOL
  11. BOOTS SENNA [Concomitant]

REACTIONS (5)
  - International normalised ratio increased [Not Recovered/Not Resolved]
  - Medication monitoring error [Unknown]
  - Gastrointestinal haemorrhage [Not Recovered/Not Resolved]
  - Melaena [Not Recovered/Not Resolved]
  - Faeces discoloured [Not Recovered/Not Resolved]
